FAERS Safety Report 7969634-1 (Version None)
Quarter: 2011Q4

REPORT INFORMATION
  Report Type: 
  Country: None (occurrence: None)
  Receive Date: 20111208
  Receipt Date: 20111129
  Transmission Date: 20120403
  Serious: Yes (Hospitalization)
  Sender: FDA-Public Use
  Company Number: 021711

PATIENT
  Sex: Female

DRUGS (5)
  1. MACUGEN [Suspect]
     Indication: RETINAL VEIN OCCLUSION
     Dosage: ,EVERY 6 WEEKS, INTRAOCULAR
     Route: 031
     Dates: start: 20110919
  2. PERCOCET [Concomitant]
  3. GLIMEPIRIDE [Concomitant]
  4. ASPIRIN [Concomitant]
  5. SYNTHROID [Concomitant]

REACTIONS (6)
  - DYSPHAGIA [None]
  - LOCAL SWELLING [None]
  - OCULAR DISCOMFORT [None]
  - HYPERTENSION [None]
  - INJECTION SITE DISCHARGE [None]
  - DRUG INEFFECTIVE [None]
